FAERS Safety Report 10606537 (Version 1)
Quarter: 2014Q4

REPORT INFORMATION
  Report Type: Spontaneous
  Country: US (occurrence: None)
  Receive Date: 20141124
  Receipt Date: 20141124
  Transmission Date: 20150529
  Serious: No
  Sender: FDA-Public Use
  Company Number: None

PATIENT
  Age: 58 Year
  Sex: Male

DRUGS (2)
  1. METHYLPREDNISOLONE. [Suspect]
     Active Substance: METHYLPREDNISOLONE
     Indication: THORACIC OUTLET SYNDROME
     Dosage: 6 PILLS DECREASING TO 1 DECREASING DOSAGE TAKEN BY MOUTH
     Dates: start: 20141110, end: 20141115
  2. METHYLPREDNISOLONE. [Suspect]
     Active Substance: METHYLPREDNISOLONE
     Indication: CERVICAL RADICULOPATHY
     Dosage: 6 PILLS DECREASING TO 1 DECREASING DOSAGE TAKEN BY MOUTH
     Dates: start: 20141110, end: 20141115

REACTIONS (3)
  - Ear pain [None]
  - Tinnitus [None]
  - Hearing impaired [None]

NARRATIVE: CASE EVENT DATE: 20141112
